FAERS Safety Report 23389362 (Version 1)
Quarter: 2024Q1

REPORT INFORMATION
  Report Type: Spontaneous
  Country: US (occurrence: US)
  Receive Date: 20240110
  Receipt Date: 20240110
  Transmission Date: 20240410
  Serious: No
  Sender: FDA-Public Use
  Company Number: US-REGENERON PHARMACEUTICALS, INC.-2023-044034

PATIENT
  Sex: Female

DRUGS (1)
  1. EYLEA [Suspect]
     Active Substance: AFLIBERCEPT
     Indication: Neovascular age-related macular degeneration
     Dosage: 2 MG, EVERY 3 MONTHS LEFT EYE, STRENGTH; 2MG/0,.05 ML FORMULATION: PFS UNKNOWN
     Dates: start: 20220516

REACTIONS (2)
  - Product dose omission issue [Recovered/Resolved]
  - Patient uncooperative [Recovered/Resolved]

NARRATIVE: CASE EVENT DATE: 20230320
